FAERS Safety Report 4580512-0 (Version None)
Quarter: 2005Q1

REPORT INFORMATION
  Report Type: 
  Country: None (occurrence: None)
  Receive Date: 20050214
  Receipt Date: 20040211
  Transmission Date: 20050727
  Serious: Yes (Hospitalization)
  Sender: FDA-Public Use
  Company Number: US-GLAXOSMITHKLINE-A0497795A

PATIENT
  Age: 17 Year
  Sex: Female
  Weight: 40.9 kg

DRUGS (1)
  1. LAMICTAL [Suspect]
     Dosage: 150MG PER DAY
     Route: 048
     Dates: start: 20040204, end: 20040207

REACTIONS (1)
  - CONVULSION [None]
